FAERS Safety Report 5073081-2 (Version None)
Quarter: 2006Q3

REPORT INFORMATION
  Report Type: 
  Country: None (occurrence: None)
  Receive Date: 20060802
  Receipt Date: 20060718
  Transmission Date: 20061208
  Serious: Yes (Death)
  Sender: FDA-Public Use
  Company Number: 163-21880-06070783

PATIENT
  Age: 58 Year
  Sex: Female

DRUGS (4)
  1. REVLIMID [Suspect]
     Indication: MULTIPLE MYELOMA
     Dosage: 2 IN 1 D, ORAL
     Route: 048
     Dates: start: 20060418, end: 20060101
  2. DEXAMETHASONE TAB [Suspect]
     Indication: MULTIPLE MYELOMA
  3. UNKNOWN ANTIBIOTICS [Concomitant]
  4. GABAPENTIN [Concomitant]

REACTIONS (1)
  - NEOPLASM MALIGNANT [None]
